FAERS Safety Report 5135075-8 (Version None)
Quarter: 2006Q4

REPORT INFORMATION
  Report Type: 
  Country: None (occurrence: None)
  Receive Date: 20060831
  Receipt Date: 20050728
  Transmission Date: 20070319
  Serious: Yes (Other)
  Sender: FDA-Public Use
  Company Number: 2004227412US

PATIENT
  Age: 50 Year
  Sex: Male
  Weight: 99.7913 kg

DRUGS (9)
  1. CAVERJECT [Suspect]
     Indication: ERECTILE DYSFUNCTION
     Dosage: 5-40 MCG/ML (AS NECESSARY),INTRACAVERNOSA
     Route: 011
     Dates: start: 20040301
  2. PROZAC [Concomitant]
  3. HUMULIN REGULAR (INSULIN HUMAN) [Concomitant]
  4. GEMFIBROZIL [Concomitant]
  5. PERCOCET [Concomitant]
  6. MOTRIN [Concomitant]
  7. ULTRAM [Concomitant]
  8. TYLENOL W/ CODEINE [Concomitant]
  9. ACETAMINOPHEN [Concomitant]

REACTIONS (3)
  - DRUG INEFFECTIVE [None]
  - INJECTION SITE PAIN [None]
  - PAINFUL ERECTION [None]
